FAERS Safety Report 17449525 (Version 1)
Quarter: 2020Q1

REPORT INFORMATION
  Report Type: Spontaneous
  Country: DE (occurrence: DE)
  Receive Date: 20200224
  Receipt Date: 20200224
  Transmission Date: 20200409
  Serious: Yes (Other)
  Sender: FDA-Public Use
  Company Number: DE-SUN PHARMACEUTICAL INDUSTRIES LTD-2020RR-237722

PATIENT
  Age: 80 Year
  Sex: Female

DRUGS (12)
  1. MEROPENEM. [Suspect]
     Active Substance: MEROPENEM
     Indication: DEVICE RELATED INFECTION
  2. CEFTAZIDIME. [Suspect]
     Active Substance: CEFTAZIDIME
     Indication: DEVICE RELATED INFECTION
  3. CEFEPIME [Suspect]
     Active Substance: CEFEPIME HYDROCHLORIDE
     Indication: DEVICE RELATED INFECTION
     Dosage: UNK
     Route: 065
  4. CEFEPIME [Suspect]
     Active Substance: CEFEPIME HYDROCHLORIDE
     Indication: ARTHRITIS INFECTIVE
  5. SULPHAMETHOXAZOLE/TRIMETHOPRIM [Suspect]
     Active Substance: SULFAMETHOXAZOLE\TRIMETHOPRIM
     Indication: DEVICE RELATED INFECTION
  6. SULPHAMETHOXAZOLE/TRIMETHOPRIM [Suspect]
     Active Substance: SULFAMETHOXAZOLE\TRIMETHOPRIM
     Indication: ARTHRITIS INFECTIVE
     Dosage: UNK
     Route: 065
  7. CEFTAZIDIME-AVIBACTAM [Suspect]
     Active Substance: AVIBACTAM SODIUM\CEFTAZIDIME
     Indication: ARTHRITIS INFECTIVE
     Dosage: UNK
     Route: 065
  8. COLISTIN [Suspect]
     Active Substance: COLISTIN
     Indication: DEVICE RELATED INFECTION
  9. MEROPENEM. [Suspect]
     Active Substance: MEROPENEM
     Indication: ARTHRITIS INFECTIVE
     Dosage: 1 GRAM
     Route: 042
  10. CEFTAZIDIME-AVIBACTAM [Suspect]
     Active Substance: AVIBACTAM SODIUM\CEFTAZIDIME
     Indication: DEVICE RELATED INFECTION
  11. COLISTIN [Suspect]
     Active Substance: COLISTIN
     Indication: ARTHRITIS INFECTIVE
     Dosage: 150 MILLIGRAM, DAILY
     Route: 042
  12. CEFTAZIDIME. [Suspect]
     Active Substance: CEFTAZIDIME
     Indication: ARTHRITIS INFECTIVE
     Dosage: 2 GRAM, BID
     Route: 042

REACTIONS (3)
  - Neurotoxicity [Unknown]
  - Nephropathy toxic [Unknown]
  - Drug resistance [Unknown]
